FAERS Safety Report 7959383-8 (Version None)
Quarter: 2011Q4

REPORT INFORMATION
  Report Type: 
  Country: None (occurrence: None)
  Receive Date: 20111206
  Receipt Date: 20111201
  Transmission Date: 20120403
  Serious: No
  Sender: FDA-Public Use
  Company Number: BR-PFIZER INC-2011272520

PATIENT
  Age: 72 Year
  Sex: Female
  Weight: 58 kg

DRUGS (7)
  1. ENALAPRIL [Concomitant]
     Indication: BLOOD PRESSURE INCREASED
     Dosage: UNK, 1X/DAY
  2. VARENICLINE TARTRATE [Suspect]
     Indication: SMOKING CESSATION THERAPY
     Dosage: UNK
     Route: 048
     Dates: start: 20111001, end: 20110101
  3. PAROXETINE [Concomitant]
     Dosage: 20 MG, 1X/DAY
     Dates: start: 20090101
  4. ZETSIM [Concomitant]
     Indication: BLOOD CHOLESTEROL
     Dosage: UNK
     Dates: start: 19990101
  5. VARENICLINE TARTRATE [Suspect]
     Dosage: 1 MG, 2X/DAY
     Route: 048
     Dates: start: 20110101, end: 20111128
  6. QUETIAPINE FUMARATE [Concomitant]
     Indication: SLEEP DISORDER
     Dosage: 2 MG, UNK
     Dates: start: 20110101
  7. CLONAZEPAM [Concomitant]
     Indication: RELAXATION THERAPY
     Dosage: 2 MG, 1X/DAY
     Dates: start: 20070101

REACTIONS (7)
  - ABDOMINAL DISCOMFORT [None]
  - NAUSEA [None]
  - VOMITING [None]
  - WEIGHT DECREASED [None]
  - BODY HEIGHT DECREASED [None]
  - ABNORMAL DREAMS [None]
  - CONSTIPATION [None]
